FAERS Safety Report 24374389 (Version 1)
Quarter: 2024Q3

REPORT INFORMATION
  Report Type: Spontaneous
  Country: US (occurrence: US)
  Receive Date: 20240927
  Receipt Date: 20240927
  Transmission Date: 20241016
  Serious: No
  Sender: PFIZER
  Company Number: US-PFIZER INC-PV202300044112

PATIENT
  Age: 72 Year
  Sex: Male

DRUGS (2)
  1. LORBRENA [Suspect]
     Active Substance: LORLATINIB
     Indication: Lung adenocarcinoma stage IV
     Dosage: 100 MG, SPORADICALLY
  2. LORBRENA [Suspect]
     Active Substance: LORLATINIB
     Dosage: 100 MG, DAILY (TAKE ONE TABLET DAILY)
     Route: 048
     Dates: start: 20230726

REACTIONS (2)
  - Intentional product misuse [Unknown]
  - Neoplasm progression [Unknown]
